FAERS Safety Report 13449473 (Version 2)
Quarter: 2017Q2

REPORT INFORMATION
  Report Type: Report from Study
  Country: US (occurrence: BR)
  Receive Date: 20170417
  Receipt Date: 20170502
  Transmission Date: 20170830
  Serious: Yes (Death, Hospitalization)
  Sender: FDA-Public Use
  Company Number: US-SUNOVION-2017SUN001571

PATIENT
  Sex: Male
  Weight: 62 kg

DRUGS (1)
  1. INDACATEROL AND GLYCOPYRROLATE [Suspect]
     Active Substance: GLYCOPYRROLATE\INDACATEROL MALEATE
     Indication: EMPHYSEMA
     Dosage: 1 DF (110/50 UG), QD
     Route: 055

REACTIONS (5)
  - Emphysema [Unknown]
  - Death [Fatal]
  - Pneumonia [Unknown]
  - Malaise [Unknown]
  - Urinary tract infection [Unknown]
